FAERS Safety Report 7306718-5 (Version None)
Quarter: 2011Q1

REPORT INFORMATION
  Report Type: 
  Country: None (occurrence: None)
  Receive Date: 20110222
  Receipt Date: 20110119
  Transmission Date: 20110831
  Serious: Yes (Hospitalization, Other)
  Sender: FDA-Public Use
  Company Number: DE-AMGEN-DEUSP2010006353

PATIENT
  Age: 56 Year
  Sex: Female

DRUGS (4)
  1. VITAMIN E                          /00110501/ [Concomitant]
  2. CALCIUM [Concomitant]
  3. MUTAFLOR [Concomitant]
  4. PROLIA [Suspect]
     Indication: OSTEOPOROSIS
     Dosage: UNK
     Dates: start: 20100901, end: 20100901

REACTIONS (6)
  - MUSCLE SPASMS [None]
  - HYPERPARATHYROIDISM [None]
  - BLOOD CALCIUM DECREASED [None]
  - CALCIUM DEFICIENCY [None]
  - ARTHRALGIA [None]
  - PARAESTHESIA [None]
